APPROVED DRUG PRODUCT: HALOPERIDOL
Active Ingredient: HALOPERIDOL
Strength: 0.5MG
Dosage Form/Route: TABLET;ORAL
Application: A071128 | Product #001
Applicant: AIPING PHARMACEUTICAL INC
Approved: Feb 17, 1987 | RLD: No | RS: No | Type: DISCN